FAERS Safety Report 18872999 (Version 2)
Quarter: 2021Q1

REPORT INFORMATION
  Report Type: Other
  Country: DE (occurrence: DE)
  Receive Date: 20210210
  Receipt Date: 20210319
  Transmission Date: 20210420
  Serious: No
  Sender: FDA-Public Use
  Company Number: DE-ROCHE-2370574

PATIENT
  Sex: Female

DRUGS (4)
  1. SALOFALK GRANU?STIX [Concomitant]
  2. OCREVUS [Suspect]
     Active Substance: OCRELIZUMAB
     Dosage: MOST RECENT DOSE OF OCRELIZUMAB: 20/AUG/2020
     Route: 042
     Dates: start: 20200130
  3. OCREVUS [Suspect]
     Active Substance: OCRELIZUMAB
     Indication: RELAPSING-REMITTING MULTIPLE SCLEROSIS
     Dosage: SUBSEQUENT DOSE ON 02/JUL/2019
     Route: 042
     Dates: start: 20190618
  4. SALOFALK [Concomitant]
     Dosage: AS REQUIRED

REACTIONS (10)
  - Body temperature increased [Recovered/Resolved]
  - COVID-19 [Recovering/Resolving]
  - Asthenia [Recovered/Resolved]
  - Nasopharyngitis [Recovered/Resolved]
  - Infection [Recovered/Resolved]
  - Drug ineffective [Unknown]
  - Fatigue [Recovered/Resolved]
  - Peripheral swelling [Recovering/Resolving]
  - Fatigue [Recovered/Resolved]
  - Illness [Recovered/Resolved]

NARRATIVE: CASE EVENT DATE: 20190702
